FAERS Safety Report 8503055-8 (Version None)
Quarter: 2012Q3

REPORT INFORMATION
  Report Type: 
  Country: None (occurrence: None)
  Receive Date: 20120711
  Receipt Date: 20120629
  Transmission Date: 20120928
  Serious: Yes (Other)
  Sender: FDA-Public Use
  Company Number: JP-ELI_LILLY_AND_COMPANY-JP201206004425

PATIENT
  Age: 84 Year
  Sex: Female

DRUGS (2)
  1. FORTEO [Suspect]
     Dosage: UNK
     Route: 058
     Dates: start: 20120515, end: 20120629
  2. LYRICA [Concomitant]
     Dosage: 150 MG, QD
     Route: 048
     Dates: start: 20120501

REACTIONS (3)
  - PANCREATITIS [None]
  - PANCREATOLITHIASIS [None]
  - BLOOD PRESSURE DECREASED [None]
